FAERS Safety Report 6269286-5 (Version None)
Quarter: 2009Q3

REPORT INFORMATION
  Report Type: 
  Country: None (occurrence: None)
  Receive Date: 20090715
  Receipt Date: 20090706
  Transmission Date: 20100115
  Serious: Yes (Other)
  Sender: FDA-Public Use
  Company Number: PHHY2009CA28497

PATIENT
  Sex: Female

DRUGS (3)
  1. EXJADE [Suspect]
     Indication: IRON OVERLOAD
     Dosage: 2500 MG, QD
     Route: 048
     Dates: start: 20090616
  2. EXJADE [Suspect]
     Dosage: 2000 MG, QD
     Route: 048
  3. DITROPAN [Concomitant]
     Indication: CYSTITIS
     Dosage: 2 MG, BID
     Route: 048

REACTIONS (3)
  - CYSTITIS [None]
  - DIARRHOEA [None]
  - PAIN OF SKIN [None]
